FAERS Safety Report 15545425 (Version 6)
Quarter: 2024Q3

REPORT INFORMATION
  Report Type: Spontaneous
  Country: FR (occurrence: FR)
  Receive Date: 20181024
  Receipt Date: 20240915
  Transmission Date: 20241017
  Serious: Yes (Death, Hospitalization, Other)
  Sender: AUROBINDO
  Company Number: None

PATIENT
  Age: 41 Year
  Sex: Male
  Weight: 55 kg

DRUGS (33)
  1. GEMCITABINE [Suspect]
     Active Substance: GEMCITABINE
     Indication: Pancreatic neuroendocrine tumour
     Dosage: 500 MILLIGRAM/SQ. METER, CYCLICAL, EVERY 14 DAYS
     Route: 065
     Dates: start: 20151105, end: 20160218
  2. GEMCITABINE [Suspect]
     Active Substance: GEMCITABINE
     Dosage: 500 MILLIGRAM/SQ. METER, CYCLICAL, EVERY 14 DAYS
     Route: 065
     Dates: start: 20160616, end: 20160729
  3. GEMCITABINE [Suspect]
     Active Substance: GEMCITABINE
     Dosage: 840 MILLIGRAM/SQ. METER, CYCLICAL, EVERY 14 DAYS
     Route: 065
     Dates: start: 20160616, end: 20160729
  4. OXALIPLATIN [Suspect]
     Active Substance: OXALIPLATIN
     Indication: Pancreatic neuroendocrine tumour
     Dosage: 75 MG/M2 EVERY14 DAYS ; CYCLICAL
     Route: 065
     Dates: start: 20151105, end: 20160218
  5. OXALIPLATIN [Suspect]
     Active Substance: OXALIPLATIN
     Dosage: 75 MILLIGRAM/SQ. METER, CYCLICAL, EVERY14 DAYS
     Route: 065
     Dates: start: 20151105
  6. OXALIPLATIN [Suspect]
     Active Substance: OXALIPLATIN
     Dosage: 75 MILLIGRAM/SQ. METER, CYCLICAL, EVERY 14 DAYS
     Route: 065
     Dates: start: 20160616
  7. OXALIPLATIN [Suspect]
     Active Substance: OXALIPLATIN
     Dosage: 75 MG/M2, Q2W
     Route: 065
     Dates: start: 20160729
  8. OXALIPLATIN [Suspect]
     Active Substance: OXALIPLATIN
     Dosage: 126 MILLIGRAM/SQ. METER, CYCLICAL, EVERY 14 DAYS
     Route: 065
     Dates: start: 20160616, end: 20160729
  9. IRINOTECAN [Suspect]
     Active Substance: IRINOTECAN
     Indication: Pancreatic neuroendocrine tumour
     Dosage: 180 MILLIGRAM/SQ. METER, IN TOTAL, SINGLE
     Route: 065
     Dates: start: 20160914
  10. FLUOROURACIL [Suspect]
     Active Substance: FLUOROURACIL
     Indication: Pancreatic neuroendocrine tumour
     Dosage: 400 MILLIGRAM/SQ. METER, IN TOTAL, SINGLE
     Route: 065
     Dates: start: 20160914, end: 20160914
  11. FLUOROURACIL [Suspect]
     Active Substance: FLUOROURACIL
     Dosage: 2400 MILLIGRAM/SQ. METER, IN TOTAL, SINGLE
     Route: 065
     Dates: start: 20160914, end: 20160914
  12. FLUOROURACIL [Suspect]
     Active Substance: FLUOROURACIL
     Dosage: 1400 MILLIGRAM/SQ. METER, TOTAL, SINGLE
     Route: 065
     Dates: start: 20160914, end: 20160914
  13. SUTENT [Suspect]
     Active Substance: SUNITINIB MALATE
     Indication: Pancreatic neuroendocrine tumour
     Dosage: 12.5 MILLIGRAM, ONCE A DAY
     Route: 065
     Dates: start: 20150910, end: 20150918
  14. SUTENT [Suspect]
     Active Substance: SUNITINIB MALATE
     Dosage: 37.5 MILLIGRAM, ONCE A DAY
     Route: 065
     Dates: start: 20150827, end: 20150831
  15. SUTENT [Suspect]
     Active Substance: SUNITINIB MALATE
     Dosage: 25 MILLIGRAM, ONCE A DAY, CONTINUOUS
     Route: 065
     Dates: start: 20150919, end: 20151023
  16. LANREOTIDE ACETATE [Suspect]
     Active Substance: LANREOTIDE ACETATE
     Indication: Pancreatic neuroendocrine tumour
     Dosage: 120 MILLIGRAM, CYCLICAL, EVERY 28 DAYS
     Route: 065
     Dates: start: 20160810, end: 20160907
  17. LANREOTIDE ACETATE [Suspect]
     Active Substance: LANREOTIDE ACETATE
     Dosage: 120 MG, CYCLIC, EVERY 28 DAYS
     Route: 065
     Dates: start: 20160907
  18. GEMZAR [Suspect]
     Active Substance: GEMCITABINE HYDROCHLORIDE
     Indication: Product used for unknown indication
     Dosage: 840 MG/M2, CYCLIC:EVERY 14 DAYS
     Route: 065
     Dates: start: 20160616, end: 20160729
  19. LEUCOVORIN CALCIUM [Suspect]
     Active Substance: LEUCOVORIN CALCIUM
     Indication: Pancreatic neuroendocrine tumour
     Dosage: 200 MILLIGRAM/SQ. METER
     Route: 065
     Dates: start: 20160914
  20. INIPOMP [Concomitant]
     Active Substance: PANTOPRAZOLE SODIUM
     Indication: Reflux gastritis
     Dosage: UNK
     Route: 048
     Dates: start: 20160616, end: 2016
  21. FERROUS SULFATE [Concomitant]
     Active Substance: FERROUS SULFATE
     Indication: Iron deficiency
     Dosage: UNK
     Route: 048
     Dates: start: 20160630, end: 20160729
  22. METEOXANE [Concomitant]
     Active Substance: AMOBARBITAL\BELLADONNA LEAF\DIMETHICONE\ERGOTAMINE TARTRATE
     Indication: Abdominal distension
     Dosage: UNK
     Route: 048
     Dates: start: 20160729
  23. TRIMEBUTINE MALEATE [Concomitant]
     Active Substance: TRIMEBUTINE MALEATE
     Indication: Abdominal distension
     Dosage: UNK
     Route: 048
     Dates: start: 20160902
  24. INNOHEP [Concomitant]
     Active Substance: TINZAPARIN SODIUM
     Indication: Prophylaxis
     Dosage: UNK
     Route: 048
     Dates: start: 20160915
  25. INNOHEP [Concomitant]
     Active Substance: TINZAPARIN SODIUM
     Indication: Reflux gastritis
     Dosage: UNK
     Route: 058
     Dates: start: 20160915
  26. OXYCODONE HYDROCHLORIDE [Concomitant]
     Active Substance: OXYCODONE HYDROCHLORIDE
     Indication: Abdominal pain
     Dosage: UNK
     Route: 048
     Dates: start: 201510
  27. OXYCODONE HYDROCHLORIDE [Concomitant]
     Active Substance: OXYCODONE HYDROCHLORIDE
     Dosage: UNK
     Route: 048
     Dates: start: 20160916, end: 20161004
  28. Solupred [Concomitant]
     Indication: Abdominal pain
     Dosage: UNK
     Route: 048
     Dates: start: 20160920, end: 20160923
  29. FENTANYL [Concomitant]
     Active Substance: FENTANYL\FENTANYL CITRATE
     Indication: Abdominal pain
     Dosage: UNK
     Route: 003
     Dates: start: 201510
  30. FENTANYL [Concomitant]
     Active Substance: FENTANYL\FENTANYL CITRATE
     Dosage: UNK
     Route: 003
     Dates: start: 20160922, end: 20161004
  31. SOLU-MEDROL [Concomitant]
     Active Substance: METHYLPREDNISOLONE SODIUM SUCCINATE
     Indication: Abdominal pain
     Dosage: UNK
     Route: 048
     Dates: start: 20160920, end: 20160920
  32. SOLU-MEDROL [Concomitant]
     Active Substance: METHYLPREDNISOLONE SODIUM SUCCINATE
     Dosage: UNK
     Route: 048
     Dates: start: 20161004, end: 20161005
  33. MORPHINE [Concomitant]
     Active Substance: MORPHINE
     Indication: Abdominal pain
     Dosage: UNK
     Route: 042
     Dates: start: 20161004, end: 20161007

REACTIONS (13)
  - Asthenia [Fatal]
  - Abdominal pain [Fatal]
  - Dyspnoea [Fatal]
  - Dysaesthesia [Fatal]
  - Decreased appetite [Fatal]
  - General physical health deterioration [Fatal]
  - Hypoaesthesia [Fatal]
  - Hepatic pain [Fatal]
  - Neutropenia [Fatal]
  - Neoplasm progression [Fatal]
  - Pain [Fatal]
  - Psychomotor retardation [Fatal]
  - Tumour necrosis [Fatal]

NARRATIVE: CASE EVENT DATE: 20150829
